FAERS Safety Report 4757160-2 (Version None)
Quarter: 2005Q3

REPORT INFORMATION
  Report Type: 
  Country: None (occurrence: None)
  Receive Date: 20050829
  Receipt Date: 20050817
  Transmission Date: 20060218
  Serious: No
  Sender: FDA-Public Use
  Company Number: 2005117582

PATIENT
  Age: 51 Year
  Sex: Male

DRUGS (4)
  1. METHYLPREDNISOLONE [Suspect]
     Indication: ILL-DEFINED DISORDER
     Dates: start: 20020101
  2. TACROLIMUS (TACROLIMUS) [Suspect]
     Indication: ILL-DEFINED DISORDER
     Dates: start: 20020101
  3. AZATHIOPRINE [Suspect]
     Indication: ILL-DEFINED DISORDER
     Dates: start: 20020101
  4. ORTHOCLONE OKT3 [Concomitant]

REACTIONS (7)
  - BONE MARROW DEPRESSION [None]
  - CYTOMEGALOVIRUS INFECTION [None]
  - DIALYSIS [None]
  - DRUG INEFFECTIVE [None]
  - KIDNEY TRANSPLANT REJECTION [None]
  - PNEUMONIA ASPERGILLUS [None]
  - RENAL HAEMORRHAGE [None]
